FAERS Safety Report 9278843 (Version 1)
Quarter: 2013Q2

REPORT INFORMATION
  Report Type: Spontaneous
  Country: GB (occurrence: GB)
  Receive Date: 20130508
  Receipt Date: 20130508
  Transmission Date: 20140414
  Serious: Yes (Hospitalization)
  Sender: FDA-Public Use
  Company Number: PHHY2013GB043503

PATIENT
  Age: 35 Year
  Sex: Male

DRUGS (9)
  1. WARFARIN [Suspect]
     Indication: PULMONARY EMBOLISM
  2. PREDNISOLONE [Suspect]
     Indication: IMMUNOSUPPRESSION
     Dosage: UNK UKN, UNK
  3. PREDNISOLONE [Suspect]
     Dosage: 40 MG, DAILY
  4. PREDNISOLONE [Suspect]
     Dosage: 5 MG, DAILY
  5. PREDNISOLONE [Suspect]
     Dosage: 3 MG, DAILY
  6. HEPARIN [Suspect]
     Indication: PULMONARY EMBOLISM
     Dosage: UNK UKN, UNK
  7. HEPARIN [Suspect]
     Dosage: 1 DF, BID
  8. MESALAZINE [Concomitant]
  9. VITAMIN K [Concomitant]

REACTIONS (12)
  - Deep vein thrombosis [Unknown]
  - Haematuria [Unknown]
  - Haematoma [Unknown]
  - Osteoporosis [Unknown]
  - Breast haematoma [Unknown]
  - Diarrhoea haemorrhagic [Recovering/Resolving]
  - Local swelling [Unknown]
  - Gastrointestinal haemorrhage [Unknown]
  - Abdominal pain [Recovering/Resolving]
  - Pain in extremity [Unknown]
  - Bone density decreased [Unknown]
  - Diarrhoea [Recovering/Resolving]
